FAERS Safety Report 11288241 (Version 1)
Quarter: 2015Q3

REPORT INFORMATION
  Report Type: Spontaneous
  Country: US (occurrence: None)
  Receive Date: 20150720
  Receipt Date: 20150720
  Transmission Date: 20151125
  Serious: Yes (Hospitalization)
  Sender: FDA-Public Use
  Company Number: None

PATIENT
  Age: 61 Year
  Sex: Female

DRUGS (1)
  1. SUTENT [Suspect]
     Active Substance: SUNITINIB MALATE
     Indication: NEOPLASM MALIGNANT
     Dosage: ONCE DAILY X4WKS, THEN 2 WKS OFF
     Route: 048
     Dates: start: 20150609, end: 20150706

REACTIONS (1)
  - Vomiting [None]

NARRATIVE: CASE EVENT DATE: 20150706
